FAERS Safety Report 21415000 (Version 1)
Quarter: 2022Q4

REPORT INFORMATION
  Report Type: Report from Study
  Country: CA (occurrence: CA)
  Receive Date: 20221006
  Receipt Date: 20221006
  Transmission Date: 20230113
  Serious: Yes (Other)
  Sender: FDA-Public Use
  Company Number: CA-TAKEDA-2022TUS070137

PATIENT
  Age: 47 Year
  Sex: Female

DRUGS (3)
  1. VEDOLIZUMAB [Suspect]
     Active Substance: VEDOLIZUMAB
     Indication: Colitis ulcerative
     Dosage: 300 MILLIGRAM
     Route: 042
  2. MESALAMINE [Concomitant]
     Active Substance: MESALAMINE
     Dosage: 20 MILLIGRAM
     Dates: start: 2005
  3. Salofalk [Concomitant]
     Dosage: UNK

REACTIONS (4)
  - Pneumonia [Unknown]
  - Hypoaesthesia oral [Recovered/Resolved]
  - Hypoaesthesia eye [Recovered/Resolved]
  - Intranasal hypoaesthesia [Recovered/Resolved]

NARRATIVE: CASE EVENT DATE: 20220905
